FAERS Safety Report 13185145 (Version 1)
Quarter: 2017Q1

REPORT INFORMATION
  Report Type: Spontaneous
  Country: FR (occurrence: FR)
  Receive Date: 20170203
  Receipt Date: 20170203
  Transmission Date: 20170428
  Serious: Yes (Other)
  Sender: FDA-Public Use
  Company Number: FR-SA-2017SA017613

PATIENT
  Age: 54 Year
  Sex: Female

DRUGS (1)
  1. TAXOTERE [Suspect]
     Active Substance: DOCETAXEL
     Indication: BREAST CANCER
     Route: 042
     Dates: start: 2005, end: 2005

REACTIONS (1)
  - Amenorrhoea [Unknown]

NARRATIVE: CASE EVENT DATE: 2005
